FAERS Safety Report 8340956-8 (Version None)
Quarter: 2012Q1

REPORT INFORMATION
  Report Type: 
  Country: None (occurrence: None)
  Receive Date: 20120330
  Receipt Date: 20110324
  Transmission Date: 20120608
  Serious: Yes (Other)
  Sender: FDA-Public Use
  Company Number: PHHY2011US9363

PATIENT
  Age: 69 Year
  Sex: Female

DRUGS (8)
  1. DIOVAN [Concomitant]
  2. EXELON [Suspect]
     Indication: DEMENTIA ALZHEIMER'S TYPE
     Dosage: 4.6;9.5 MG, UNK, TRANSDERMAL
     Route: 062
     Dates: start: 20101215, end: 20110207
  3. HYDROCHLOROTHIAZIDE [Concomitant]
  4. SOTALOL HCL [Concomitant]
  5. NAMENDA [Concomitant]
  6. CARBIDOPA/LEVODOPA (CARBIDOPA, LEVODOPA) [Concomitant]
  7. SINEMET [Concomitant]
  8. SIMVASTATIN [Concomitant]

REACTIONS (7)
  - APPLICATION SITE RASH [None]
  - ERYTHEMA [None]
  - APPLICATION SITE IRRITATION [None]
  - APPLICATION SITE PRURITUS [None]
  - APPLICATION SITE DERMATITIS [None]
  - APPLICATION SITE ERYTHEMA [None]
  - BLOOD PRESSURE INCREASED [None]
